FAERS Safety Report 18573921 (Version 4)
Quarter: 2023Q1

REPORT INFORMATION
  Report Type: Spontaneous
  Country: US (occurrence: US)
  Receive Date: 20201203
  Receipt Date: 20230104
  Transmission Date: 20230417
  Serious: Yes (Other)
  Sender: FDA-Public Use
  Company Number: US-SA-2020SA347779

PATIENT
  Age: 61 Year
  Sex: Female

DRUGS (1)
  1. DUPIXENT [Suspect]
     Active Substance: DUPILUMAB
     Indication: Nasal polyps
     Dosage: 300 MG, QOW
     Route: 058
     Dates: start: 202009

REACTIONS (6)
  - Endometrial cancer stage I [Unknown]
  - Eye disorder [Unknown]
  - Intraocular pressure increased [Unknown]
  - Weight increased [Unknown]
  - Ocular hyperaemia [Unknown]
  - Hysterectomy [Unknown]
